FAERS Safety Report 9437638 (Version 1)
Quarter: 2013Q3

REPORT INFORMATION
  Report Type: Spontaneous
  Country: US (occurrence: US)
  Receive Date: 20130802
  Receipt Date: 20130802
  Transmission Date: 20140515
  Serious: Yes (Hospitalization)
  Sender: FDA-Public Use
  Company Number: US-ASTRAZENECA-2013SE57367

PATIENT
  Age: 79 Year
  Sex: Female
  Weight: 72.6 kg

DRUGS (1)
  1. SYMBICORT [Suspect]
     Indication: CHRONIC OBSTRUCTIVE PULMONARY DISEASE
     Dosage: 160/4.5, 2 PUFFS BID
     Route: 055
     Dates: start: 2012

REACTIONS (3)
  - Gastrooesophageal reflux disease [Unknown]
  - Weight decreased [Unknown]
  - Body height decreased [Unknown]
